FAERS Safety Report 7852253-5 (Version None)
Quarter: 2011Q4

REPORT INFORMATION
  Report Type: 
  Country: None (occurrence: None)
  Receive Date: 20111026
  Receipt Date: 20111014
  Transmission Date: 20120403
  Serious: Yes (Death, Hospitalization)
  Sender: FDA-Public Use
  Company Number: DK-LLY01-EWC050845399

PATIENT
  Sex: Female

DRUGS (9)
  1. HEXASOPTIN [Concomitant]
     Dosage: UNK, UNKNOWN
  2. ASPIRIN [Concomitant]
     Dosage: UNK, UNKNOWN
  3. MORPHINE SULFATE [Concomitant]
     Indication: PAIN
     Dosage: UNK, UNKNOWN
  4. POTASSIUM CHLORIDE [Concomitant]
     Dosage: UNK, UNKNOWN
  5. PANTALOC [Concomitant]
     Dosage: UNK, UNKNOWN
  6. FOLINSYRE [Concomitant]
     Dosage: UNK, UNKNOWN
  7. METHOTREXAT                        /00113801/ [Concomitant]
     Indication: PSORIASIS
     Dosage: UNK, UNKNOWN
  8. FUROSEMIDE [Concomitant]
     Indication: CARDIAC FAILURE
     Dosage: UNK, UNKNOWN
  9. FORTEO [Suspect]
     Indication: OSTEOPOROSIS
     Dosage: 20 UG, DAILY (1/D)
     Dates: start: 20050425, end: 20050523

REACTIONS (3)
  - DEATH [None]
  - PNEUMONIA [None]
  - DYSPNOEA [None]
